FAERS Safety Report 7250432-1 (Version None)
Quarter: 2011Q1

REPORT INFORMATION
  Report Type: 
  Country: None (occurrence: None)
  Receive Date: 20110119
  Receipt Date: 20110104
  Transmission Date: 20110831
  Serious: Yes (Other)
  Sender: FDA-Public Use
  Company Number: AUR-APL-2011-00025

PATIENT
  Age: 68 Year
  Sex: Male

DRUGS (8)
  1. CO-CODAMOL [Concomitant]
  2. LANSOPRAZOLE [Concomitant]
  3. SLO-PHYLLIN [Concomitant]
  4. METFORMIN HCL [Concomitant]
  5. GABAPENTIN [Suspect]
     Indication: POST HERPETIC NEURALGIA
     Dosage: 100MG-TID-ORAL
     Route: 048
     Dates: start: 20100430, end: 20100514
  6. CARBOCISTEINE [Concomitant]
  7. IPRATROPIUM BROMIDE [Concomitant]
  8. INSULIN ASPART [Concomitant]

REACTIONS (3)
  - DIZZINESS [None]
  - HALLUCINATION, VISUAL [None]
  - SENSORY DISTURBANCE [None]
